FAERS Safety Report 9215927 (Version 1)
Quarter: 2013Q2

REPORT INFORMATION
  Report Type: Spontaneous
  Country: US (occurrence: None)
  Receive Date: 20130403
  Receipt Date: 20130403
  Transmission Date: 20140414
  Serious: Yes (Other)
  Sender: FDA-Public Use
  Company Number: 2013/077

PATIENT
  Age: 60 Year
  Sex: Female

DRUGS (2)
  1. AMLODIPINE [Suspect]
  2. SERTRALINE [Suspect]

REACTIONS (8)
  - Tardive dyskinesia [None]
  - Balance disorder [None]
  - Disturbance in attention [None]
  - Swollen tongue [None]
  - Salivary hypersecretion [None]
  - Cough [None]
  - Radial nerve palsy [None]
  - Tremor [None]
